FAERS Safety Report 18184288 (Version 1)
Quarter: 2020Q3

REPORT INFORMATION
  Report Type: Spontaneous
  Country: FR (occurrence: FR)
  Receive Date: 20200824
  Receipt Date: 20200824
  Transmission Date: 20201103
  Serious: Yes (Other)
  Sender: FDA-Public Use
  Company Number: FR-ROCHE-2663700

PATIENT
  Age: 67 Year
  Sex: Male
  Weight: 75 kg

DRUGS (6)
  1. RISORDAN (FRANCE) [Concomitant]
  2. INSULINE [Concomitant]
     Active Substance: INSULIN NOS
  3. VALSARTAN. [Concomitant]
     Active Substance: VALSARTAN
  4. BISOPROLOL FUMARATE. [Concomitant]
     Active Substance: BISOPROLOL FUMARATE
  5. ROACTEMRA [Suspect]
     Active Substance: TOCILIZUMAB
     Indication: GIANT CELL ARTERITIS
     Route: 041
     Dates: start: 20200708
  6. PREVISCAN (FRANCE) [Concomitant]
     Active Substance: FLUINDIONE

REACTIONS (1)
  - Angina pectoris [Recovered/Resolved]

NARRATIVE: CASE EVENT DATE: 20200708
